FAERS Safety Report 24913158 (Version 2)
Quarter: 2025Q1

REPORT INFORMATION
  Report Type: Spontaneous
  Country: FR (occurrence: FR)
  Receive Date: 20250201
  Receipt Date: 20250221
  Transmission Date: 20250408
  Serious: Yes (Death, Life-Threatening)
  Sender: ROCHE
  Company Number: None

PATIENT
  Age: 83 Year
  Sex: Male
  Weight: 53 kg

DRUGS (2)
  1. ESBRIET [Suspect]
     Active Substance: PIRFENIDONE
     Indication: Idiopathic pulmonary fibrosis
     Route: 065
  2. AREXVY [Suspect]
     Active Substance: RECOMBINANT RESPIRATORY SYNCYTIAL VIRUS PRE-FUSION F PROTEIN ANTIGEN
     Indication: Respiratory syncytial virus immunisation
     Route: 030
     Dates: start: 20241205, end: 20241205

REACTIONS (3)
  - Fatigue [Not Recovered/Not Resolved]
  - Dyspnoea [Not Recovered/Not Resolved]
  - Respiratory distress [Fatal]

NARRATIVE: CASE EVENT DATE: 20241209
